FAERS Safety Report 23088690 (Version 1)
Quarter: 2023Q4

REPORT INFORMATION
  Report Type: Spontaneous
  Country: US (occurrence: None)
  Receive Date: 20231018
  Receipt Date: 20231018
  Transmission Date: 20240109
  Serious: Yes (Life-Threatening, Hospitalization)
  Sender: FDA-Public Use
  Company Number: None

PATIENT
  Age: 49 Year
  Sex: Female
  Weight: 76.66 kg

DRUGS (2)
  1. XELJANZ [Suspect]
     Active Substance: TOFACITINIB CITRATE
     Indication: Rheumatoid arthritis
     Dosage: FREQUENCY : DAILY;?
     Route: 048
     Dates: start: 20201220, end: 20231006
  2. OTEZLA [Suspect]
     Active Substance: APREMILAST
     Indication: Psoriatic arthropathy
     Route: 048
     Dates: start: 20201230, end: 20231016

REACTIONS (9)
  - Altered state of consciousness [None]
  - Communication disorder [None]
  - Facial paralysis [None]
  - Computerised tomogram abnormal [None]
  - Cerebral disorder [None]
  - Hemiparesis [None]
  - Grip strength decreased [None]
  - Off label use [None]
  - Product use issue [None]

NARRATIVE: CASE EVENT DATE: 20231007
